FAERS Safety Report 10389348 (Version 1)
Quarter: 2014Q3

REPORT INFORMATION
  Report Type: Spontaneous
  Country: MX (occurrence: MX)
  Receive Date: 20140818
  Receipt Date: 20140818
  Transmission Date: 20150326
  Serious: Yes (Death, Hospitalization)
  Sender: FDA-Public Use
  Company Number: MX-UCBSA-2014008301

PATIENT
  Age: 79 Year
  Sex: Male
  Weight: 59 kg

DRUGS (2)
  1. NUBRENZA [Suspect]
     Active Substance: ROTIGOTINE
     Indication: PARKINSON^S DISEASE
     Dosage: 4 MG, ONCE DAILY (QD)
     Route: 003
     Dates: start: 20110208, end: 201401
  2. LEVODOPA [Concomitant]
     Active Substance: LEVODOPA
     Dosage: UNK, 2X/DAY (BID), 1 TABLET

REACTIONS (1)
  - Intestinal obstruction [Fatal]

NARRATIVE: CASE EVENT DATE: 20140126
